FAERS Safety Report 9426413 (Version 1)
Quarter: 2013Q3

REPORT INFORMATION
  Report Type: Spontaneous
  Country: US (occurrence: US)
  Receive Date: 20130730
  Receipt Date: 20130730
  Transmission Date: 20140515
  Serious: Yes (Other)
  Sender: FDA-Public Use
  Company Number: US-BAYER-2013-091041

PATIENT
  Age: 44 Year
  Sex: Female

DRUGS (3)
  1. YAZ [Suspect]
     Indication: MENORRHAGIA
     Dosage: UNK
     Dates: start: 2006
  2. YAZ [Suspect]
     Indication: DYSMENORRHOEA
  3. YASMIN [Suspect]
     Dosage: UNK
     Dates: start: 2006

REACTIONS (1)
  - Thrombophlebitis superficial [None]
